FAERS Safety Report 8852723 (Version 3)
Quarter: 2012Q4

REPORT INFORMATION
  Report Type: 
  Country: US (occurrence: US)
  Receive Date: 20121022
  Receipt Date: 20121102
  Transmission Date: 20130627
  Serious: No
  Sender: FDA-Public Use
  Company Number: US-VERTEX PHARMACEUTICAL INC.-2012-022913

PATIENT
  Age: 58 Year
  Sex: Male
  Weight: 113 kg

DRUGS (6)
  1. INCIVEK [Suspect]
     Indication: HEPATITIS C
     Dosage: 750 mg, tid
     Route: 048
     Dates: start: 20121004, end: 20121011
  2. RIBAVIRIN [Suspect]
     Indication: HEPATITIS C
     Dosage: 600mg in AM, 400mg in pm
     Dates: start: 20121004, end: 20121011
  3. PEGASYS [Suspect]
     Indication: HEPATITIS C
     Dosage: 180 ?g/ week
     Route: 058
     Dates: start: 20121004, end: 20121011
  4. METFORMIN [Concomitant]
  5. LOSARTAN [Concomitant]
  6. TRIAMTERENE [Concomitant]

REACTIONS (2)
  - Rash papular [Recovered/Resolved]
  - Pruritus [Recovered/Resolved]
